FAERS Safety Report 6288105-4 (Version None)
Quarter: 2009Q3

REPORT INFORMATION
  Report Type: 
  Country: None (occurrence: None)
  Receive Date: 20090729
  Receipt Date: 20080928
  Transmission Date: 20100115
  Serious: No
  Sender: FDA-Public Use
  Company Number: A0750350A

PATIENT
  Sex: Female

DRUGS (2)
  1. ZANTAC [Suspect]
     Indication: DRUG USE FOR UNKNOWN INDICATION
     Dosage: 150MG TWICE PER DAY
     Route: 065
  2. MOTRIN [Concomitant]

REACTIONS (1)
  - ALOPECIA [None]
